FAERS Safety Report 5413742-6 (Version None)
Quarter: 2007Q3

REPORT INFORMATION
  Report Type: 
  Country: None (occurrence: None)
  Receive Date: 20070814
  Receipt Date: 20070808
  Transmission Date: 20080115
  Serious: No
  Sender: FDA-Public Use
  Company Number: JP-MERCK-0707USA05004

PATIENT
  Age: 84 Year
  Sex: Female

DRUGS (2)
  1. FOSAMAX [Suspect]
     Indication: OSTEOPOROSIS
     Route: 048
     Dates: start: 20070518, end: 20070709
  2. BROTIZOLAM [Concomitant]
     Indication: INSOMNIA
     Route: 048

REACTIONS (4)
  - ARTHRALGIA [None]
  - C-REACTIVE PROTEIN INCREASED [None]
  - MYALGIA [None]
  - PYREXIA [None]
